FAERS Safety Report 21222753 (Version 2)
Quarter: 2022Q3

REPORT INFORMATION
  Report Type: Spontaneous
  Country: US (occurrence: None)
  Receive Date: 20220817
  Receipt Date: 20220919
  Transmission Date: 20221027
  Serious: No
  Sender: FDA-Public Use
  Company Number: 2022A270888

PATIENT
  Age: 76 Year
  Sex: Female
  Weight: 25.1 kg

DRUGS (1)
  1. TEZSPIRE [Suspect]
     Active Substance: TEZEPELUMAB-EKKO
     Indication: Asthma
     Route: 058
     Dates: start: 20220526

REACTIONS (3)
  - Headache [Recovered/Resolved]
  - Hypertension [Unknown]
  - Stress [Unknown]

NARRATIVE: CASE EVENT DATE: 20220528
